FAERS Safety Report 17279430 (Version 2)
Quarter: 2020Q1

REPORT INFORMATION
  Report Type: Spontaneous
  Country: FR (occurrence: FR)
  Receive Date: 20200116
  Receipt Date: 20200121
  Transmission Date: 20200409
  Serious: Yes (Death, Hospitalization, Other)
  Sender: FDA-Public Use
  Company Number: FR-PFIZER INC-2020018276

PATIENT
  Age: 38 Year
  Sex: Female

DRUGS (4)
  1. METHOTREXATE SODIUM. [Suspect]
     Active Substance: METHOTREXATE SODIUM
     Indication: RHEUMATOID ARTHRITIS
     Dosage: 10 MG, UNK
  2. BETAMETHASONE VALERATE. [Suspect]
     Active Substance: BETAMETHASONE VALERATE
     Dosage: 600 G, MONTHLY (600 G, 20 TUBES A MONTH OR 600 GRAMS PER MONTH OR 7.2 KG PER YEAR)
     Route: 061
  3. DEXERYL [GLYCEROL;PARAFFIN, LIQUID;WHITE SOFT PARAFFIN] [Concomitant]
     Active Substance: GLYCERIN\MINERAL OIL\PETROLATUM
     Dosage: UNK UNK, 1X/DAY
  4. BETAMETHASONE VALERATE. [Suspect]
     Active Substance: BETAMETHASONE VALERATE
     Indication: PRURITUS
     Dosage: UNK
     Route: 061

REACTIONS (16)
  - Skin infection [Fatal]
  - Renal failure [Fatal]
  - Septic shock [Fatal]
  - Fall [Fatal]
  - Adrenocorticotropic hormone deficiency [Fatal]
  - Adrenal insufficiency [Fatal]
  - Traumatic fracture [Fatal]
  - Multiple organ dysfunction syndrome [Fatal]
  - Wound necrosis [Fatal]
  - Fibula fracture [Fatal]
  - Skin atrophy [Fatal]
  - Netherton^s syndrome [Fatal]
  - Intertrigo [Fatal]
  - Cushing^s syndrome [Fatal]
  - Osteoporosis [Fatal]
  - Intentional product misuse [Fatal]
